FAERS Safety Report 25609222 (Version 1)
Quarter: 2025Q3

REPORT INFORMATION
  Report Type: Spontaneous
  Country: US (occurrence: US)
  Receive Date: 20250727
  Receipt Date: 20250727
  Transmission Date: 20251020
  Serious: No
  Sender: DR REDDYS
  Company Number: US-DRL-USA-USA/2025/06/009273

PATIENT
  Sex: Female

DRUGS (4)
  1. NORTRIPTYLINE HYDROCHLORIDE [Suspect]
     Active Substance: NORTRIPTYLINE HYDROCHLORIDE
     Indication: Headache
     Route: 065
  2. NORTRIPTYLINE HYDROCHLORIDE [Suspect]
     Active Substance: NORTRIPTYLINE HYDROCHLORIDE
     Indication: Sleep disorder
  3. EMPAVELI [Suspect]
     Active Substance: PEGCETACOPLAN
     Indication: Paroxysmal nocturnal haemoglobinuria
     Route: 058
     Dates: start: 20211201
  4. SOLIRIS [Concomitant]
     Active Substance: ECULIZUMAB
     Indication: Product used for unknown indication
     Route: 065

REACTIONS (7)
  - Headache [Unknown]
  - Anxiety [Unknown]
  - Laboratory test abnormal [Unknown]
  - Adverse drug reaction [Unknown]
  - Sleep disorder [Unknown]
  - Drug ineffective [Unknown]
  - Fatigue [Not Recovered/Not Resolved]
